FAERS Safety Report 7305214-9 (Version None)
Quarter: 2011Q1

REPORT INFORMATION
  Report Type: 
  Country: None (occurrence: None)
  Receive Date: 20110222
  Receipt Date: 20110215
  Transmission Date: 20110831
  Serious: Yes (Other)
  Sender: FDA-Public Use
  Company Number: US-PFIZER INC-2010079826

PATIENT
  Sex: Male
  Weight: 70.748 kg

DRUGS (4)
  1. NADOLOL [Concomitant]
     Dosage: 20 MG, DAILY
  2. ZOLOFT [Suspect]
     Dosage: 50 MG, 2X/DAY
     Route: 048
  3. ZOLOFT [Suspect]
     Indication: DEPRESSION
     Dosage: 250 MG, 2X/DAY
     Route: 048
     Dates: start: 20100101
  4. ALDACTONE [Concomitant]
     Dosage: 100 MG, UNK

REACTIONS (1)
  - LIVER TRANSPLANT [None]
